FAERS Safety Report 6914286-2 (Version None)
Quarter: 2010Q3

REPORT INFORMATION
  Report Type: 
  Country: None (occurrence: None)
  Receive Date: 20100809
  Receipt Date: 20100730
  Transmission Date: 20110219
  Serious: Yes (Life-Threatening, Hospitalization)
  Sender: FDA-Public Use
  Company Number: B0666950A

PATIENT
  Sex: Male

DRUGS (2)
  1. LAMICTAL [Suspect]
     Indication: DEPRESSION
     Dosage: 25MG PER DAY
     Route: 048
  2. CIPRALEX [Concomitant]
     Dosage: 10MG PER DAY

REACTIONS (6)
  - BLINDNESS [None]
  - CORNEAL LEUKOMA [None]
  - EYE INFLAMMATION [None]
  - EYE PENETRATION [None]
  - TOXIC EPIDERMAL NECROLYSIS [None]
  - VISUAL IMPAIRMENT [None]
